FAERS Safety Report 5680523-8 (Version None)
Quarter: 2008Q1

REPORT INFORMATION
  Report Type: 
  Country: None (occurrence: None)
  Receive Date: 20080326
  Receipt Date: 20080324
  Transmission Date: 20080703
  Serious: Yes (Other)
  Sender: FDA-Public Use
  Company Number: US-ASTRAZENECA-2008UW05778

PATIENT
  Age: 66 Year
  Sex: Female

DRUGS (2)
  1. ATACAND [Suspect]
     Route: 048
     Dates: start: 20041208
  2. CRESTOR [Suspect]
     Route: 048
     Dates: start: 20041208

REACTIONS (3)
  - HYPOAESTHESIA ORAL [None]
  - PARAESTHESIA [None]
  - RASH [None]
